FAERS Safety Report 7492507-8 (Version None)
Quarter: 2011Q2

REPORT INFORMATION
  Report Type: 
  Country: None (occurrence: None)
  Receive Date: 20110519
  Receipt Date: 20110510
  Transmission Date: 20111010
  Serious: Yes (Other)
  Sender: FDA-Public Use
  Company Number: US-PFIZER INC-2005171797

PATIENT
  Age: 6 Year
  Sex: Male

DRUGS (2)
  1. LINEZOLID [Suspect]
     Indication: STAPHYLOCOCCAL OSTEOMYELITIS
     Dosage: 170 MG, 2X/DAY
     Route: 065
  2. METRONIDAZOLE [Concomitant]
     Route: 065

REACTIONS (4)
  - RETINAL OEDEMA [None]
  - VISUAL ACUITY REDUCED [None]
  - OPTIC ATROPHY [None]
  - OPTIC NEUROPATHY [None]
